FAERS Safety Report 16839222 (Version 1)
Quarter: 2019Q4

REPORT INFORMATION
  Report Type: Spontaneous
  Country: US (occurrence: US)
  Receive Date: 20190921
  Receipt Date: 20190921
  Transmission Date: 20200122
  Serious: Yes (Hospitalization, Disabling)
  Sender: FDA-Public Use
  Company Number: None

PATIENT
  Age: 81 Year
  Sex: Female
  Weight: 58 kg

DRUGS (8)
  1. AMLODIPINE [Concomitant]
     Active Substance: AMLODIPINE BESYLATE
     Dates: start: 20130506
  2. ISOSORBIDE SA 30MG [Concomitant]
  3. ATORVASTATIN [Suspect]
     Active Substance: ATORVASTATIN
     Indication: CORONARY ARTERY DISEASE
     Route: 048
     Dates: start: 20190903, end: 20190920
  4. METOPROLOL XR 50MG [Concomitant]
     Dates: start: 20190911
  5. CLOPIDOGREL [Concomitant]
     Active Substance: CLOPIDOGREL BISULFATE
     Dates: start: 20190903
  6. LISINOPRIL 10MG [Concomitant]
     Active Substance: LISINOPRIL
     Dates: start: 20190911
  7. METFORMIN 500MG [Concomitant]
     Active Substance: METFORMIN HYDROCHLORIDE
     Dates: start: 20190911
  8. ASPIRIN 81MG [Concomitant]
     Active Substance: ASPIRIN

REACTIONS (4)
  - Asthenia [None]
  - Acute myocardial infarction [None]
  - Muscular weakness [None]
  - Movement disorder [None]

NARRATIVE: CASE EVENT DATE: 20190918
